FAERS Safety Report 5514911-7 (Version None)
Quarter: 2007Q4

REPORT INFORMATION
  Report Type: 
  Country: None (occurrence: None)
  Receive Date: 20071113
  Receipt Date: 20060929
  Transmission Date: 20080405
  Serious: No
  Sender: FDA-Public Use
  Company Number: A0621938A

PATIENT
  Age: 80 Year
  Sex: Female

DRUGS (12)
  1. COREG [Suspect]
     Indication: DRUG USE FOR UNKNOWN INDICATION
     Dosage: 25MG TWICE PER DAY
     Route: 048
  2. PREVACID [Concomitant]
  3. NORVASC [Concomitant]
  4. CYMBALTA [Concomitant]
  5. VASOTEC [Concomitant]
  6. LANOXIN [Concomitant]
  7. COUMADIN [Concomitant]
  8. LIPITOR [Concomitant]
  9. SYNTHROID [Concomitant]
  10. POTASSIUM CHLORIDE [Concomitant]
  11. DEMADEX [Concomitant]
  12. SANCTURA [Concomitant]

REACTIONS (1)
  - DRUG DISPENSING ERROR [None]
